FAERS Safety Report 13484390 (Version 1)
Quarter: 2017Q2

REPORT INFORMATION
  Report Type: Report from Study
  Country: None (occurrence: US)
  Receive Date: 20170425
  Receipt Date: 20170425
  Transmission Date: 20170830
  Serious: Yes (Other)
  Sender: FDA-Public Use
  Company Number: US-ABBVIE-16K-163-1779392-00

PATIENT
  Age: 73 Year
  Sex: Female

DRUGS (2)
  1. HUMIRA [Suspect]
     Active Substance: ADALIMUMAB
     Indication: RHEUMATOID ARTHRITIS
     Route: 058
     Dates: start: 20160426, end: 2016
  2. HUMIRA [Suspect]
     Active Substance: ADALIMUMAB
     Route: 058
     Dates: start: 20160906

REACTIONS (13)
  - Anxiety [Unknown]
  - Neck pain [Not Recovered/Not Resolved]
  - Concussion [Unknown]
  - Nerve injury [Unknown]
  - Fall [Unknown]
  - Cellulitis [Unknown]
  - Musculoskeletal stiffness [Unknown]
  - Fear [Unknown]
  - Joint stiffness [Unknown]
  - Loss of consciousness [Unknown]
  - Joint swelling [Recovering/Resolving]
  - Arthralgia [Recovering/Resolving]
  - Gait disturbance [Unknown]

NARRATIVE: CASE EVENT DATE: 2016
